FAERS Safety Report 15734500 (Version 1)
Quarter: 2018Q4

REPORT INFORMATION
  Report Type: Spontaneous
  Country: CN (occurrence: CN)
  Receive Date: 20181218
  Receipt Date: 20181218
  Transmission Date: 20190205
  Serious: Yes (Other)
  Sender: FDA-Public Use
  Company Number: CN-ROCHE-2232933

PATIENT
  Age: 43 Year
  Sex: Male

DRUGS (52)
  1. CYCLOPHOSPHAMIDE. [Concomitant]
     Active Substance: CYCLOPHOSPHAMIDE
     Dosage: ON DAY 2
     Route: 042
     Dates: start: 20161031
  2. CYCLOPHOSPHAMIDE. [Concomitant]
     Active Substance: CYCLOPHOSPHAMIDE
     Dosage: ON DAY 2
     Route: 042
     Dates: start: 20170102
  3. EPIRUBICIN HYDROCHLORIDE. [Concomitant]
     Active Substance: EPIRUBICIN HYDROCHLORIDE
     Dosage: ON DAY 2
     Route: 041
     Dates: start: 20170102
  4. PREDNISONE ACETATE [Concomitant]
     Active Substance: PREDNISONE ACETATE
     Indication: DIFFUSE LARGE B-CELL LYMPHOMA
     Dosage: FROM DAY 2 TO DAY 6
     Route: 065
     Dates: start: 20161009
  5. CISPLATIN. [Concomitant]
     Active Substance: CISPLATIN
     Dosage: ON DAY 1
     Route: 065
     Dates: start: 20170718
  6. ETOPOSIDE. [Concomitant]
     Active Substance: ETOPOSIDE
     Route: 065
     Dates: start: 20171204
  7. EPIRUBICIN HYDROCHLORIDE. [Concomitant]
     Active Substance: EPIRUBICIN HYDROCHLORIDE
     Dosage: ON DAY 2
     Route: 041
     Dates: start: 20161009
  8. EPIRUBICIN HYDROCHLORIDE. [Concomitant]
     Active Substance: EPIRUBICIN HYDROCHLORIDE
     Dosage: ON DAY 2
     Route: 041
     Dates: start: 20161121
  9. EPIRUBICIN HYDROCHLORIDE. [Concomitant]
     Active Substance: EPIRUBICIN HYDROCHLORIDE
     Dosage: ON DAY 2
     Route: 041
     Dates: start: 20161212
  10. PREDNISONE ACETATE [Concomitant]
     Active Substance: PREDNISONE ACETATE
     Dosage: FROM DAY 2 TO DAY 6
     Route: 065
     Dates: start: 20170102
  11. PREDNISONE ACETATE [Concomitant]
     Active Substance: PREDNISONE ACETATE
     Dosage: FROM DAY 2 TO DAY 6
     Route: 065
     Dates: start: 20170123
  12. CYTARABINE. [Concomitant]
     Active Substance: CYTARABINE
     Dosage: ON DAY 2
     Route: 065
     Dates: start: 20170811
  13. CYTARABINE. [Concomitant]
     Active Substance: CYTARABINE
     Route: 065
     Dates: start: 20171204
  14. VIDARABINE [Concomitant]
     Active Substance: VIDARABINE
     Dosage: ONCE PER 12 HOURS
     Route: 065
  15. MABTHERA [Suspect]
     Active Substance: RITUXIMAB
     Dosage: ON DAY 1
     Route: 041
     Dates: start: 20161121
  16. MABTHERA [Suspect]
     Active Substance: RITUXIMAB
     Dosage: ON DAY 1
     Route: 041
     Dates: start: 20170123
  17. LENALIDOMIDE [Concomitant]
     Active Substance: LENALIDOMIDE
     Dosage: LAST FOR 2 WEEKS
     Route: 048
  18. CYCLOPHOSPHAMIDE. [Concomitant]
     Active Substance: CYCLOPHOSPHAMIDE
     Dosage: ON DAY 2
     Route: 042
     Dates: start: 20161121
  19. CYCLOPHOSPHAMIDE. [Concomitant]
     Active Substance: CYCLOPHOSPHAMIDE
     Dosage: ON DAY 2
     Route: 042
     Dates: start: 20161212
  20. CYCLOPHOSPHAMIDE. [Concomitant]
     Active Substance: CYCLOPHOSPHAMIDE
     Dosage: ON DAY 2
     Route: 042
     Dates: start: 20170218
  21. EPIRUBICIN HYDROCHLORIDE. [Concomitant]
     Active Substance: EPIRUBICIN HYDROCHLORIDE
     Dosage: ON DAY 2
     Route: 041
     Dates: start: 20161031
  22. PREDNISONE ACETATE [Concomitant]
     Active Substance: PREDNISONE ACETATE
     Dosage: FROM DAY 2 TO DAY 6
     Route: 065
     Dates: start: 20170311
  23. DEXAMETHASONE. [Concomitant]
     Active Substance: DEXAMETHASONE
     Route: 065
     Dates: start: 20171006
  24. ETOPOSIDE. [Concomitant]
     Active Substance: ETOPOSIDE
     Dosage: FROM DAY 1 TO DAY 3
     Route: 065
     Dates: start: 20171104
  25. MABTHERA [Suspect]
     Active Substance: RITUXIMAB
     Indication: DIFFUSE LARGE B-CELL LYMPHOMA
     Dosage: ON DAY 1
     Route: 041
     Dates: start: 20161009
  26. EPIRUBICIN HYDROCHLORIDE. [Concomitant]
     Active Substance: EPIRUBICIN HYDROCHLORIDE
     Dosage: ON DAY 2
     Route: 041
     Dates: start: 20170218
  27. PREDNISONE ACETATE [Concomitant]
     Active Substance: PREDNISONE ACETATE
     Dosage: FROM DAY 2 TO DAY 6
     Route: 065
     Dates: start: 20170218
  28. CYTARABINE. [Concomitant]
     Active Substance: CYTARABINE
     Route: 065
     Dates: start: 20171006
  29. CARMUSTINE. [Concomitant]
     Active Substance: CARMUSTINE
     Route: 065
     Dates: start: 20171204
  30. MABTHERA [Suspect]
     Active Substance: RITUXIMAB
     Dosage: ON DAY 1
     Route: 041
     Dates: start: 20170218
  31. CYCLOPHOSPHAMIDE. [Concomitant]
     Active Substance: CYCLOPHOSPHAMIDE
     Indication: DIFFUSE LARGE B-CELL LYMPHOMA
     Dosage: ON DAY 2
     Route: 042
     Dates: start: 20161009
  32. CYCLOPHOSPHAMIDE. [Concomitant]
     Active Substance: CYCLOPHOSPHAMIDE
     Dosage: ON DAY 2
     Route: 042
     Dates: start: 20170123
  33. EPIRUBICIN HYDROCHLORIDE. [Concomitant]
     Active Substance: EPIRUBICIN HYDROCHLORIDE
     Dosage: ON DAY 2
     Route: 041
     Dates: start: 20170123
  34. PREDNISONE ACETATE [Concomitant]
     Active Substance: PREDNISONE ACETATE
     Dosage: FROM DAY 2 TO DAY 6
     Route: 065
     Dates: start: 20161031
  35. CISPLATIN. [Concomitant]
     Active Substance: CISPLATIN
     Route: 065
     Dates: start: 20171006
  36. MITOXANTRONE HYDROCHLORIDE. [Concomitant]
     Active Substance: MITOXANTRONE HYDROCHLORIDE
     Dosage: ON DAY 1
     Route: 065
     Dates: start: 20171104
  37. MABTHERA [Suspect]
     Active Substance: RITUXIMAB
     Dosage: ON DAY 1
     Route: 041
     Dates: start: 20170311
  38. CYCLOPHOSPHAMIDE. [Concomitant]
     Active Substance: CYCLOPHOSPHAMIDE
     Dosage: ON DAY 2
     Route: 042
     Dates: start: 20170311
  39. EPIRUBICIN HYDROCHLORIDE. [Concomitant]
     Active Substance: EPIRUBICIN HYDROCHLORIDE
     Dosage: ON DAY 2
     Route: 041
     Dates: start: 20170311
  40. PREDNISONE ACETATE [Concomitant]
     Active Substance: PREDNISONE ACETATE
     Dosage: FROM DAY 2 TO DAY 6
     Route: 065
     Dates: start: 20161121
  41. PREDNISONE ACETATE [Concomitant]
     Active Substance: PREDNISONE ACETATE
     Dosage: FROM DAY 2 TO DAY 6
     Route: 065
     Dates: start: 20161212
  42. CYTARABINE. [Concomitant]
     Active Substance: CYTARABINE
     Indication: DIFFUSE LARGE B-CELL LYMPHOMA
     Dosage: ON DAY 2
     Route: 065
     Dates: start: 20170718
  43. DEXAMETHASONE. [Concomitant]
     Active Substance: DEXAMETHASONE
     Indication: DIFFUSE LARGE B-CELL LYMPHOMA
     Dosage: FROM DAY 1 TO DAY 4
     Route: 065
     Dates: start: 20170718
  44. ETOPOSIDE. [Concomitant]
     Active Substance: ETOPOSIDE
     Dosage: FROM DAY 1 TO DAY 3
     Route: 065
     Dates: start: 20170912
  45. IFOSFAMIDE. [Concomitant]
     Active Substance: IFOSFAMIDE
     Dosage: FROM DAY 1 TO DAY 3
     Route: 065
     Dates: start: 20171104
  46. MELPHALAN. [Concomitant]
     Active Substance: MELPHALAN
     Route: 065
     Dates: start: 20171204
  47. MABTHERA [Suspect]
     Active Substance: RITUXIMAB
     Dosage: ON DAY 1
     Route: 041
     Dates: start: 20161031
  48. MABTHERA [Suspect]
     Active Substance: RITUXIMAB
     Dosage: ON DAY 1
     Route: 041
     Dates: start: 20161212
  49. MABTHERA [Suspect]
     Active Substance: RITUXIMAB
     Dosage: ON DAY 1
     Route: 041
     Dates: start: 20170102
  50. CISPLATIN. [Concomitant]
     Active Substance: CISPLATIN
     Dosage: ON DAY 1
     Route: 065
     Dates: start: 20170811
  51. CYTARABINE. [Concomitant]
     Active Substance: CYTARABINE
     Dosage: FROM DAY 1 TO DAY 3
     Route: 065
     Dates: start: 20170912
  52. DEXAMETHASONE. [Concomitant]
     Active Substance: DEXAMETHASONE
     Dosage: FROM DAY 1 TO DAY 4
     Route: 065
     Dates: start: 20170811

REACTIONS (6)
  - Cholelithiasis [Unknown]
  - Erythema [Unknown]
  - Cholecystitis chronic [Unknown]
  - Pain of skin [Unknown]
  - Skin ulcer [Unknown]
  - Pain [Unknown]

NARRATIVE: CASE EVENT DATE: 2017
